FAERS Safety Report 12220908 (Version 1)
Quarter: 2016Q1

REPORT INFORMATION
  Report Type: Spontaneous
  Country: US (occurrence: None)
  Receive Date: 20160329
  Receipt Date: 20160329
  Transmission Date: 20160526
  Serious: Yes (Life-Threatening, Disabling, Other)
  Sender: FDA-Public Use
  Company Number: None

PATIENT
  Age: 13 Year
  Sex: Female
  Weight: 106.6 kg

DRUGS (5)
  1. FLUDROCORTISONE [Concomitant]
     Active Substance: FLUDROCORTISONE
  2. SYNTHROID [Concomitant]
     Active Substance: LEVOTHYROXINE SODIUM
  3. MULTIVITAMIN [Concomitant]
     Active Substance: VITAMINS
  4. HYDROCORTISONE. [Suspect]
     Active Substance: HYDROCORTISONE
     Indication: ADRENAL INSUFFICIENCY
     Route: 048
     Dates: start: 20160201, end: 20160318
  5. METFORMIN [Concomitant]
     Active Substance: METFORMIN HYDROCHLORIDE

REACTIONS (10)
  - Malaise [None]
  - Anxiety [None]
  - Self esteem decreased [None]
  - Fatigue [None]
  - Depression [None]
  - Intracranial pressure increased [None]
  - Feeling abnormal [None]
  - Product substitution issue [None]
  - Educational problem [None]
  - Pain [None]

NARRATIVE: CASE EVENT DATE: 20160202
